FAERS Safety Report 23980090 (Version 1)
Quarter: 2024Q2

REPORT INFORMATION
  Report Type: Spontaneous
  Country: US (occurrence: US)
  Receive Date: 20240617
  Receipt Date: 20240617
  Transmission Date: 20240716
  Serious: No
  Sender: FDA-Public Use
  Company Number: US-BIOGEN-2021BI01053086

PATIENT
  Age: 55 Year
  Sex: Female

DRUGS (12)
  1. VUMERITY [Suspect]
     Active Substance: DIROXIMEL FUMARATE
     Indication: Multiple sclerosis
     Route: 050
  2. VUMERITY [Suspect]
     Active Substance: DIROXIMEL FUMARATE
     Route: 050
     Dates: start: 20210323
  3. AMLODIPINE BESYLATE [Concomitant]
     Active Substance: AMLODIPINE BESYLATE
     Route: 050
  4. QUINAPRIL [Concomitant]
     Active Substance: QUINAPRIL
     Route: 050
  5. BACLOFEN [Concomitant]
     Active Substance: BACLOFEN
     Route: 050
  6. BUPROPION HYDROCHLORIDE [Concomitant]
     Active Substance: BUPROPION HYDROCHLORIDE
     Route: 050
  7. LEVOTHYROXINE SODIUM [Concomitant]
     Active Substance: LEVOTHYROXINE SODIUM
     Route: 050
  8. CARBAMAZEPINE [Concomitant]
     Active Substance: CARBAMAZEPINE
     Route: 050
  9. D3-50 [Concomitant]
     Route: 050
  10. VENLAFAXINE HCL [Concomitant]
     Active Substance: VENLAFAXINE HYDROCHLORIDE
     Route: 050
  11. FOLIC ACID [Concomitant]
     Active Substance: FOLIC ACID
     Route: 050
  12. NM-6603 [Concomitant]
     Active Substance: NM-6603
     Route: 050

REACTIONS (3)
  - Gait disturbance [Not Recovered/Not Resolved]
  - Drug ineffective [Unknown]
  - Fall [Recovered/Resolved]

NARRATIVE: CASE EVENT DATE: 20210801
